FAERS Safety Report 9820100 (Version 1)
Quarter: 2013Q4

REPORT INFORMATION
  Report Type: Spontaneous
  Country: US (occurrence: None)
  Receive Date: 20131021
  Receipt Date: 20131021
  Transmission Date: 20140711
  Serious: Yes (Other)
  Sender: FDA-Public Use
  Company Number: ALL1-2013-00316

PATIENT
  Age: 35 Year
  Sex: Female
  Weight: 61.7 kg

DRUGS (11)
  1. VYVANSE (LISDEXAMFETAMINE DIMESYLATE) CAPSULE [Suspect]
     Indication: ATTENTION DEFICIT/HYPERACTIVITY DISORDER
     Route: 048
     Dates: start: 20121030, end: 20121222
  2. NEURONTIN (GABAPENTIN) [Concomitant]
  3. PROZAC (FLUOXETINE HYDROCHLORIDE) [Concomitant]
  4. ACARBOSA (ACARBOSE) [Concomitant]
  5. AMLODIPINE (AMLODIPINE) [Concomitant]
  6. FLOMAX /00889901/ (MORNIFLUMATE) [Concomitant]
  7. AMITIZA (LUBIPROSTONE) [Concomitant]
  8. FLEXERIL /00428402/ (CYCLOBENZAPRINE HYDROCHLORIDE) [Concomitant]
  9. ULTRAM (TRAMADOL HYDROCHLORIDE) [Concomitant]
  10. PHENERGAN /00033001/ (PROMETHAZINE) [Concomitant]
  11. KLONOPIN (CLONAZEPAM) [Concomitant]

REACTIONS (6)
  - Psychotic behaviour [None]
  - Imprisonment [None]
  - Abnormal behaviour [None]
  - Anger [None]
  - Mania [None]
  - Aggression [None]
